FAERS Safety Report 5712005-9 (Version None)
Quarter: 2008Q2

REPORT INFORMATION
  Report Type: 
  Country: None (occurrence: None)
  Receive Date: 20080417
  Receipt Date: 20080411
  Transmission Date: 20081010
  Serious: Yes (Death, Life-Threatening, Hospitalization)
  Sender: FDA-Public Use
  Company Number: 013-C5013-08030989

PATIENT
  Age: 82 Year
  Sex: Female
  Weight: 56 kg

DRUGS (6)
  1. CC-5013\PLACEBO (LENALIDOMIDE) (CAPSULES) [Suspect]
     Indication: MULTIPLE MYELOMA
     Dosage: 2 CAPS, QD, ORAL
     Route: 048
     Dates: start: 20080304, end: 20080313
  2. MELPHALAN (MELPHALAN) [Suspect]
     Indication: MULTIPLE MYELOMA
     Dosage: 10 MG, QD, ORAL
     Route: 048
     Dates: start: 20080304, end: 20080307
  3. PREDNISONE TAB [Suspect]
     Indication: MULTIPLE MYELOMA
     Dosage: 113 MG, QD, ORAL
     Route: 048
     Dates: start: 20080304, end: 20080307
  4. PACKED CELLS (RED BLOOD CELLS, CONCENTRATED) [Concomitant]
  5. NEUPOGEN [Concomitant]
  6. DIPYRIDAMOLE [Concomitant]

REACTIONS (12)
  - ANAEMIA [None]
  - ATRIAL FIBRILLATION [None]
  - CARDIOGENIC SHOCK [None]
  - LEUKOPENIA [None]
  - MYOCARDIAL INFARCTION [None]
  - MYOCARDIAL ISCHAEMIA [None]
  - NEPHROPATHY TOXIC [None]
  - PULMONARY OEDEMA [None]
  - PYREXIA [None]
  - RESPIRATORY DISTRESS [None]
  - STRESS CARDIOMYOPATHY [None]
  - THROMBOCYTOPENIA [None]
